FAERS Safety Report 8270104-4 (Version None)
Quarter: 2012Q2

REPORT INFORMATION
  Report Type: 
  Country: None (occurrence: None)
  Receive Date: 20120410
  Receipt Date: 20120328
  Transmission Date: 20120825
  Serious: Yes (Other)
  Sender: FDA-Public Use
  Company Number: PHEH2012US003815

PATIENT
  Sex: Female

DRUGS (12)
  1. GILENYA [Suspect]
     Indication: MULTIPLE SCLEROSIS
     Dosage: 0.5 MG, QD
     Route: 048
     Dates: start: 20120124
  2. GILENYA [Suspect]
     Indication: RELAPSING-REMITTING MULTIPLE SCLEROSIS
  3. VICODIN [Concomitant]
  4. PROVENTIL-HFA [Concomitant]
  5. CALCIUM CARBONATE W/VITAMIN D NOS [Concomitant]
  6. MIRAPEX [Concomitant]
     Dosage: 1 DF, QHS
     Route: 048
  7. NEURONTIN [Concomitant]
     Dosage: 1 DF, TID
     Route: 048
  8. VALIUM [Concomitant]
     Indication: MUSCLE SPASMS
     Dosage: 1 DF, QHS
     Route: 048
  9. FAMPRIDINE [Concomitant]
     Dosage: 10 MG, TID
  10. CYMBALTA [Concomitant]
     Dosage: 1 DF, BID
     Route: 048
  11. BACLOFEN [Concomitant]
     Dosage: 1 DF, TID
     Route: 048
  12. LASIX [Concomitant]

REACTIONS (9)
  - NAUSEA [None]
  - PAIN IN EXTREMITY [None]
  - FASCIITIS [None]
  - DYSPNOEA [None]
  - HYPERKERATOSIS [None]
  - HEART RATE INCREASED [None]
  - FATIGUE [None]
  - TENDONITIS [None]
  - COUGH [None]
